FAERS Safety Report 25768549 (Version 1)
Quarter: 2025Q3

REPORT INFORMATION
  Report Type: Spontaneous
  Country: CN (occurrence: CN)
  Receive Date: 20250905
  Receipt Date: 20250905
  Transmission Date: 20251020
  Serious: Yes (Other)
  Sender: MERCK SHARP & DOHME LLC
  Company Number: CN-009507513-2325915

PATIENT
  Age: 43 Year
  Sex: Male

DRUGS (2)
  1. TEMOZOLOMIDE [Suspect]
     Active Substance: TEMOZOLOMIDE
     Indication: Glioblastoma
     Route: 048
     Dates: start: 20241230, end: 20250209
  2. TEMOZOLOMIDE [Suspect]
     Active Substance: TEMOZOLOMIDE
     Indication: Glioblastoma
     Route: 048
     Dates: start: 20250309

REACTIONS (4)
  - Metastases to spine [Unknown]
  - Pilonidal disease [Unknown]
  - Glioblastoma [Unknown]
  - Recurrent cancer [Unknown]

NARRATIVE: CASE EVENT DATE: 20250101
